FAERS Safety Report 8050163-4 (Version None)
Quarter: 2012Q1

REPORT INFORMATION
  Report Type: 
  Country: None (occurrence: None)
  Receive Date: 20120117
  Receipt Date: 20120109
  Transmission Date: 20120608
  Serious: Yes (Death)
  Sender: FDA-Public Use
  Company Number: US-MERCK-1201USA01703

PATIENT
  Age: 90 Year
  Sex: Female

DRUGS (2)
  1. TIMOPTIC [Suspect]
     Route: 047
  2. METOPROLOL [Suspect]
     Route: 065

REACTIONS (1)
  - MEDICATION ERROR [None]
